FAERS Safety Report 16916380 (Version 3)
Quarter: 2020Q1

REPORT INFORMATION
  Report Type: Spontaneous
  Country: US (occurrence: US)
  Receive Date: 20191014
  Receipt Date: 20200206
  Transmission Date: 20200409
  Serious: Yes (Hospitalization, Other)
  Sender: FDA-Public Use
  Company Number: US-JNJFOC-20191010098

PATIENT
  Age: 35 Year
  Sex: Female

DRUGS (1)
  1. INVOKANA [Suspect]
     Active Substance: CANAGLIFLOZIN
     Indication: PRODUCT USED FOR UNKNOWN INDICATION
     Dosage: PER ORAL BEFORE FIRST MEAL
     Route: 048

REACTIONS (3)
  - Cellulitis [Unknown]
  - Necrotising fasciitis [Unknown]
  - Gangrene [Unknown]

NARRATIVE: CASE EVENT DATE: 201603
